FAERS Safety Report 9820492 (Version 4)
Quarter: 2014Q3

REPORT INFORMATION
  Report Type: Spontaneous
  Country: US (occurrence: US)
  Receive Date: 20140116
  Receipt Date: 20140714
  Transmission Date: 20150326
  Serious: Yes (Hospitalization, Disabling, Other)
  Sender: FDA-Public Use
  Company Number: US-009507513-1401USA002070

PATIENT
  Sex: Female

DRUGS (2)
  1. FOSAMAX PLUS D [Suspect]
     Active Substance: ALENDRONATE SODIUM\CHOLECALCIFEROL
     Dosage: 70 MG/2800, UNK
     Route: 048
     Dates: start: 20070807, end: 20080827
  2. FOSAMAX [Suspect]
     Active Substance: ALENDRONATE SODIUM
     Indication: OSTEOPOROSIS
     Dosage: 70 MG, UNK
     Route: 048
     Dates: start: 200708, end: 201112

REACTIONS (17)
  - Wrist fracture [Unknown]
  - Oedema peripheral [Unknown]
  - Dental caries [Unknown]
  - Sleep apnoea syndrome [Unknown]
  - Fall [Unknown]
  - Groin pain [Unknown]
  - Type 2 diabetes mellitus [Unknown]
  - Non-cardiac chest pain [Unknown]
  - Osteonecrosis of jaw [Not Recovered/Not Resolved]
  - Nephrolithiasis [Unknown]
  - Cushingoid [Unknown]
  - Abdominal pain [Unknown]
  - Fibromyalgia [Unknown]
  - Hypertension [Unknown]
  - Back pain [Unknown]
  - Vitamin D deficiency [Unknown]
  - Groin pain [Unknown]

NARRATIVE: CASE EVENT DATE: 20080821
